FAERS Safety Report 11931802 (Version 2)
Quarter: 2016Q2

REPORT INFORMATION
  Report Type: Spontaneous
  Country: US (occurrence: US)
  Receive Date: 20160120
  Receipt Date: 20160412
  Transmission Date: 20160815
  Serious: No
  Sender: FDA-Public Use
  Company Number: US-INCYTE CORPORATION-2015IN005428

PATIENT
  Age: 90 Year
  Sex: Female
  Weight: 55.78 kg

DRUGS (11)
  1. JAKAFI [Suspect]
     Active Substance: RUXOLITINIB
     Indication: POLYCYTHAEMIA VERA
     Dosage: 10 MG
     Route: 048
  2. HYDROXYUREA. [Concomitant]
     Active Substance: HYDROXYUREA
  3. JAKAFI [Suspect]
     Active Substance: RUXOLITINIB
     Dosage: 5 MG DAILY, VARIED
     Route: 048
     Dates: start: 201506, end: 20151028
  4. LEVOTHYROXINE. [Concomitant]
     Active Substance: LEVOTHYROXINE
  5. WARFARIN [Concomitant]
     Active Substance: WARFARIN
  6. BIOTIN [Concomitant]
     Active Substance: BIOTIN
  7. JAKAFI [Suspect]
     Active Substance: RUXOLITINIB
     Dosage: 5 MG, QD
     Route: 048
  8. METOLAZONE. [Concomitant]
     Active Substance: METOLAZONE
  9. FUROSEMIDE. [Concomitant]
     Active Substance: FUROSEMIDE
  10. BABY ASPIRIN [Concomitant]
     Active Substance: ASPIRIN
  11. MAGNESIUM                          /00123201/ [Concomitant]

REACTIONS (3)
  - Fatigue [Unknown]
  - Anaemia [Unknown]
  - Pneumonia [Recovered/Resolved]

NARRATIVE: CASE EVENT DATE: 201511
